FAERS Safety Report 15772794 (Version 1)
Quarter: 2018Q4

REPORT INFORMATION
  Report Type: Spontaneous
  Country: IT (occurrence: IT)
  Receive Date: 20181228
  Receipt Date: 20181228
  Transmission Date: 20190205
  Serious: Yes (Other)
  Sender: FDA-Public Use
  Company Number: IT-OTSUKA-2018_038729

PATIENT
  Age: 36 Year
  Sex: Female
  Weight: 65 kg

DRUGS (1)
  1. ABILIFY MAINTENA [Suspect]
     Active Substance: ARIPIPRAZOLE
     Indication: SCHIZOPHRENIA
     Dosage: 400 MG, UNK
     Route: 030
     Dates: start: 20171103, end: 20181116

REACTIONS (2)
  - Drug ineffective [Unknown]
  - Delusion [Unknown]

NARRATIVE: CASE EVENT DATE: 20181026
